FAERS Safety Report 25930671 (Version 2)
Quarter: 2025Q4

REPORT INFORMATION
  Report Type: Spontaneous
  Country: JP (occurrence: JP)
  Receive Date: 20251016
  Receipt Date: 20251024
  Transmission Date: 20260117
  Serious: Yes (Hospitalization, Other)
  Sender: MERCK SHARP & DOHME LLC
  Company Number: JP-009507513-2340006

PATIENT
  Age: 49 Year
  Sex: Female

DRUGS (3)
  1. KEYTRUDA [Suspect]
     Active Substance: PEMBROLIZUMAB
     Indication: Adenocarcinoma of the cervix
  2. PACLITAXEL [Suspect]
     Active Substance: PACLITAXEL
     Indication: Adenocarcinoma of the cervix
  3. CARBOPLATIN [Suspect]
     Active Substance: CARBOPLATIN
     Indication: Adenocarcinoma of the cervix

REACTIONS (23)
  - Pyelonephritis [Unknown]
  - Cytokine release syndrome [Unknown]
  - Septic shock [Unknown]
  - Multiple organ dysfunction syndrome [Recovering/Resolving]
  - Myalgia [Unknown]
  - Oropharyngeal pain [Unknown]
  - Headache [Unknown]
  - Myocarditis [Unknown]
  - Influenza like illness [Unknown]
  - Diarrhoea [Unknown]
  - Rhabdomyolysis [Unknown]
  - Haemophagocytic lymphohistiocytosis [Unknown]
  - Malaise [Unknown]
  - Immune-mediated adverse reaction [Unknown]
  - Pancreatitis [Unknown]
  - Erythema multiforme [Unknown]
  - Dermatitis exfoliative generalised [Unknown]
  - Enterocolitis [Unknown]
  - Pyrexia [Unknown]
  - Rash [Unknown]
  - Renal failure [Unknown]
  - Cardiac failure [Recovering/Resolving]
  - Respiratory failure [Recovering/Resolving]
